FAERS Safety Report 23251809 (Version 1)
Quarter: 2023Q4

REPORT INFORMATION
  Report Type: Spontaneous
  Country: CN (occurrence: CN)
  Receive Date: 20231201
  Receipt Date: 20231201
  Transmission Date: 20240109
  Serious: Yes (Hospitalization, Other)
  Sender: FDA-Public Use
  Company Number: None

PATIENT
  Age: 50 Year
  Sex: Female

DRUGS (6)
  1. IFOSFAMIDE [Suspect]
     Active Substance: IFOSFAMIDE
     Indication: Lymphoma
     Dosage: 2 G, ONE TIME IN ONE DAY, D1
     Route: 041
     Dates: start: 20230830, end: 20230830
  2. IFOSFAMIDE [Suspect]
     Active Substance: IFOSFAMIDE
     Dosage: 1 G, ONE TIME IN ONE DAY, D2
     Route: 041
     Dates: start: 20230831, end: 20230831
  3. MESNA [Suspect]
     Active Substance: MESNA
     Indication: Lymphoma
     Dosage: 0.4 G, ONE TIME IN ONE DAY, D1-2
     Route: 041
     Dates: start: 20230830, end: 20230831
  4. ETOPOSIDE [Suspect]
     Active Substance: ETOPOSIDE
     Indication: Lymphoma
     Dosage: 0.15 G, ONE TIME IN ONE DAY D1-4
     Route: 041
     Dates: start: 20230830, end: 20230902
  5. CARBOPLATIN [Suspect]
     Active Substance: CARBOPLATIN
     Indication: Lymphoma
     Dosage: 200 MG, ONE TIME IN ONE DAY, D2
     Route: 041
     Dates: start: 20230831, end: 20230831
  6. DEXAMETHASONE [Suspect]
     Active Substance: DEXAMETHASONE
     Indication: Lymphoma
     Dosage: 15 MG, ONE TIME IN ONE DAY (ADJUSTED ACCORDING TO THE CONDITION)
     Route: 041
     Dates: start: 20230830, end: 20230830

REACTIONS (1)
  - Myelosuppression [Unknown]

NARRATIVE: CASE EVENT DATE: 20230913
